FAERS Safety Report 14966861 (Version 1)
Quarter: 2018Q2

REPORT INFORMATION
  Report Type: Spontaneous
  Country: ES (occurrence: ES)
  Receive Date: 20180604
  Receipt Date: 20180604
  Transmission Date: 20180711
  Serious: No
  Sender: FDA-Public Use
  Company Number: ES-CHEPLA-1941968

PATIENT
  Age: 63 Year
  Sex: Female

DRUGS (3)
  1. XENICAL [Suspect]
     Active Substance: ORLISTAT
     Indication: DYSCHEZIA
     Dosage: DOSE WAS REDUCED TO 1 CAPSULES PER DAY
     Route: 048
     Dates: start: 2017, end: 20170524
  2. XENICAL [Suspect]
     Active Substance: ORLISTAT
     Indication: DYSCHEZIA
     Dosage: ONE CAPSULE AT LUNCH AND ONE CAPSULES IN THE DINNER
     Route: 048
     Dates: start: 2016
  3. PENICILLIN [Concomitant]
     Active Substance: PENICILLIN
     Indication: SINUSITIS

REACTIONS (9)
  - Asthenia [Recovering/Resolving]
  - Off label use [Recovered/Resolved]
  - Gastrointestinal disorder [Unknown]
  - Blood glucose decreased [Unknown]
  - Swelling [Recovering/Resolving]
  - Dehydration [Unknown]
  - Fatigue [Recovering/Resolving]
  - Dizziness [Recovered/Resolved]
  - Weight decreased [Unknown]

NARRATIVE: CASE EVENT DATE: 2016
